FAERS Safety Report 9562796 (Version 2)
Quarter: 2013Q4

REPORT INFORMATION
  Report Type: Spontaneous
  Country: US (occurrence: US)
  Receive Date: 20130927
  Receipt Date: 20131107
  Transmission Date: 20140711
  Serious: Yes (Other)
  Sender: FDA-Public Use
  Company Number: US-BRISTOL-MYERS SQUIBB COMPANY-19422203

PATIENT
  Age: 61 Year
  Sex: Female

DRUGS (11)
  1. BYETTA [Suspect]
     Indication: DIABETES MELLITUS
     Route: 058
     Dates: start: 200706, end: 201307
  2. HUMULIN [Concomitant]
  3. IRON [Concomitant]
  4. METFORMIN [Concomitant]
  5. NEURONTIN [Concomitant]
  6. VASOTEC [Concomitant]
  7. GLYBURIDE [Concomitant]
  8. LASIX [Concomitant]
  9. ZOCOR [Concomitant]
  10. MOBIC [Concomitant]
  11. PROTONIX [Concomitant]

REACTIONS (1)
  - Pancreatic carcinoma [Not Recovered/Not Resolved]
